APPROVED DRUG PRODUCT: AMIDATE
Active Ingredient: ETOMIDATE
Strength: 2MG/ML
Dosage Form/Route: INJECTABLE;INJECTION
Application: N018227 | Product #001 | TE Code: AP
Applicant: HOSPIRA INC
Approved: Sep 7, 1982 | RLD: Yes | RS: Yes | Type: RX